FAERS Safety Report 7575492-X (Version None)
Quarter: 2011Q2

REPORT INFORMATION
  Report Type: 
  Country: None (occurrence: None)
  Receive Date: 20110627
  Receipt Date: 20110623
  Transmission Date: 20111010
  Serious: Yes (Death)
  Sender: FDA-Public Use
  Company Number: PHHY2011GB55660

PATIENT
  Age: 47 Year
  Sex: Female
  Weight: 60 kg

DRUGS (2)
  1. CISPLATIN [Suspect]
     Indication: SQUAMOUS CELL CARCINOMA
     Dosage: UNK UKN, UNK
     Route: 042
     Dates: start: 20110201, end: 20110531
  2. FLUOROURACIL [Suspect]
     Indication: SQUAMOUS CELL CARCINOMA
     Dosage: UNK UKN, UNK
     Dates: start: 20110201, end: 20110531

REACTIONS (2)
  - STATUS EPILEPTICUS [None]
  - CEREBRAL HAEMORRHAGE [None]
